FAERS Safety Report 25614491 (Version 1)
Quarter: 2025Q3

REPORT INFORMATION
  Report Type: Other
  Country: CN (occurrence: CN)
  Receive Date: 20250729
  Receipt Date: 20250729
  Transmission Date: 20251020
  Serious: Yes (Hospitalization, Other)
  Sender: ANI
  Company Number: CN-ANIPHARMA-023812

PATIENT
  Age: 30 Year
  Sex: Female

DRUGS (7)
  1. CEFUROXIME [Suspect]
     Active Substance: CEFUROXIME
     Indication: Evidence based treatment
  2. DYDROGESTERONE [Concomitant]
     Active Substance: DYDROGESTERONE
     Indication: Hormone replacement therapy
     Route: 048
  3. ESTRADIOL VALERATE [Concomitant]
     Active Substance: ESTRADIOL VALERATE
     Indication: Hormone replacement therapy
     Route: 048
  4. DYDROGESTERONE\ESTRADIOL [Concomitant]
     Active Substance: DYDROGESTERONE\ESTRADIOL
     Indication: Hormone replacement therapy
     Route: 048
  5. PROGESTERONE [Concomitant]
     Active Substance: PROGESTERONE
     Indication: Hormone replacement therapy
     Route: 067
  6. CEFOPERAZONE [Concomitant]
     Active Substance: CEFOPERAZONE
     Indication: Evidence based treatment
  7. PIPERACILLIN [Concomitant]
     Active Substance: PIPERACILLIN
     Indication: Evidence based treatment

REACTIONS (4)
  - Tuberculosis [Recovering/Resolving]
  - Disseminated tuberculosis [Recovering/Resolving]
  - Meningitis tuberculous [Recovering/Resolving]
  - Exposure during pregnancy [Unknown]
